FAERS Safety Report 19732360 (Version 1)
Quarter: 2021Q3

REPORT INFORMATION
  Report Type: Report from Study
  Country: IT (occurrence: IT)
  Receive Date: 20210822
  Receipt Date: 20210822
  Transmission Date: 20211014
  Serious: Yes (Hospitalization)
  Sender: FDA-Public Use
  Company Number: IT-TEVA-2021-IT-1943357

PATIENT
  Age: 64 Year
  Sex: Female

DRUGS (3)
  1. PANTOPRAZOLE [Concomitant]
     Active Substance: PANTOPRAZOLE
     Indication: HIATUS HERNIA
     Dosage: 20 MG
     Route: 048
  2. LEVOFLOXACIN. [Suspect]
     Active Substance: LEVOFLOXACIN
     Indication: BRONCHIOLITIS
     Dosage: 500 MG
     Route: 048
     Dates: start: 20210312, end: 20210312
  3. GAVISCON 500 MG/10 ML + 267 MG/ 10 ML SOSPENSIONE ORALE AROMA MENTA [Concomitant]
     Indication: GASTRIC DISORDER
     Dosage: 1 DF
     Route: 048

REACTIONS (3)
  - Muscle spasms [Recovering/Resolving]
  - Nausea [Recovering/Resolving]
  - Asthenia [Recovering/Resolving]

NARRATIVE: CASE EVENT DATE: 20210313
